FAERS Safety Report 10476033 (Version 1)
Quarter: 2014Q3

REPORT INFORMATION
  Report Type: Spontaneous
  Country: GB (occurrence: GB)
  Receive Date: 20140925
  Receipt Date: 20140925
  Transmission Date: 20150326
  Serious: Yes (Other)
  Sender: FDA-Public Use
  Company Number: GB-PFIZER INC-2014262366

PATIENT
  Age: 15 Year
  Sex: Female

DRUGS (3)
  1. GENOTROPIN [Suspect]
     Active Substance: SOMATROPIN
     Indication: GROWTH HORMONE DEFICIENCY
     Dosage: 1.6 MG, UNK INCREASED OVER THE YEARS
     Route: 058
     Dates: start: 201208, end: 201408
  2. THYROXINE [Concomitant]
     Active Substance: LEVOTHYROXINE
     Indication: HYPOTHYROIDISM
     Dosage: 100 UG, 1X/DAY
  3. MAXIDEX [Concomitant]
     Active Substance: DEXAMETHASONE
     Indication: DRY EYE
     Dosage: 4 DF, 1X/DAY
     Route: 050

REACTIONS (2)
  - Nasal discomfort [Unknown]
  - Cancer pain [Unknown]

NARRATIVE: CASE EVENT DATE: 201407
